FAERS Safety Report 5569525-X (Version None)
Quarter: 2007Q4

REPORT INFORMATION
  Report Type: 
  Country: None (occurrence: None)
  Receive Date: 20071220
  Receipt Date: 20071212
  Transmission Date: 20080405
  Serious: Yes (Death, Hospitalization)
  Sender: FDA-Public Use
  Company Number: IN-AMGEN-UK257055

PATIENT
  Age: 62 Year
  Sex: Female

DRUGS (4)
  1. NEULASTIM [Suspect]
     Indication: CHEMOTHERAPY
     Route: 058
     Dates: start: 20071206, end: 20071206
  2. DOCETAXEL [Concomitant]
     Route: 042
     Dates: start: 20071205, end: 20071205
  3. DOXORUBICIN HYDROCHLORIDE [Concomitant]
     Route: 042
     Dates: start: 20071205, end: 20071205
  4. CYCLOPHOSPHAMIDE [Concomitant]
     Route: 042
     Dates: start: 20071205, end: 20071205

REACTIONS (2)
  - FULL BLOOD COUNT DECREASED [None]
  - SEPTIC SHOCK [None]
